FAERS Safety Report 19726286 (Version 2)
Quarter: 2021Q3

REPORT INFORMATION
  Report Type: Spontaneous
  Country: GR (occurrence: GR)
  Receive Date: 20210819
  Receipt Date: 20210901
  Transmission Date: 20211014
  Serious: Yes (Hospitalization)
  Sender: FDA-Public Use
  Company Number: GR-UCBSA-2021038739

PATIENT
  Age: 10 Year
  Sex: Female

DRUGS (9)
  1. KEPPRA [Suspect]
     Active Substance: LEVETIRACETAM
     Indication: SEIZURE
     Dosage: UNKNOWN DOSE
  2. GANCICLOVIR. [Concomitant]
     Active Substance: GANCICLOVIR
     Indication: HUMAN HERPESVIRUS 7 INFECTION
     Dosage: UNKNOWN DOSE
  3. GAMMA GLOBULIN [Concomitant]
     Active Substance: IMMUNE GLOBULIN NOS
     Indication: ENCEPHALITIS AUTOIMMUNE
     Dosage: UNKNOWN DOSE
  4. PHENOBARBITAL. [Suspect]
     Active Substance: PHENOBARBITAL
     Indication: SEIZURE
     Dosage: UNKNOWN DOSE
  5. CLOBAZAM. [Suspect]
     Active Substance: CLOBAZAM
     Indication: SEIZURE
     Dosage: UNKNOWN DOSE
  6. MIDAZOLAM. [Suspect]
     Active Substance: MIDAZOLAM
     Indication: SEIZURE
     Dosage: UNKNOWN DOSE
  7. VALPROIC ACID. [Concomitant]
     Active Substance: VALPROIC ACID
     Indication: EPILEPSY
     Dosage: UNKNOWN DOSE
  8. PREDNISOLONE. [Concomitant]
     Active Substance: PREDNISOLONE
     Indication: HUMAN HERPESVIRUS 7 INFECTION
     Dosage: UNKNOWN DOSE
  9. LACOSAMIDE. [Suspect]
     Active Substance: LACOSAMIDE
     Indication: SEIZURE
     Dosage: UNKNOWN DOSE

REACTIONS (6)
  - Sleep disorder [Unknown]
  - Learning disability [Unknown]
  - Encephalitis autoimmune [Unknown]
  - Cognitive disorder [Unknown]
  - Behaviour disorder [Unknown]
  - Multiple-drug resistance [Unknown]
